FAERS Safety Report 23619904 (Version 2)
Quarter: 2024Q1

REPORT INFORMATION
  Report Type: Report from Study
  Country: US (occurrence: US)
  Receive Date: 20240312
  Receipt Date: 20240319
  Transmission Date: 20240409
  Serious: Yes (Other)
  Sender: FDA-Public Use
  Company Number: US-ABBVIE-5672719

PATIENT
  Sex: Female
  Weight: 64.41 kg

DRUGS (1)
  1. SKYRIZI [Suspect]
     Active Substance: RISANKIZUMAB-RZAA
     Indication: Hidradenitis
     Dosage: FORM STRENGTH: 150 MILLIGRAM
     Route: 058
     Dates: start: 202208, end: 20231201

REACTIONS (6)
  - Foot fracture [Unknown]
  - Surgery [Unknown]
  - Impaired healing [Unknown]
  - Memory impairment [Unknown]
  - Condition aggravated [Unknown]
  - Vertigo [Unknown]
